FAERS Safety Report 4814667-7 (Version None)
Quarter: 2005Q4

REPORT INFORMATION
  Report Type: 
  Country: None (occurrence: None)
  Receive Date: 20051028
  Receipt Date: 20041213
  Transmission Date: 20060501
  Serious: No
  Sender: FDA-Public Use
  Company Number: US-GLAXOSMITHKLINE-A0537118A

PATIENT
  Age: 12 Year
  Sex: Female

DRUGS (5)
  1. ADVAIR DISKUS 100/50 [Suspect]
     Indication: ASTHMA
     Dosage: 1PUFF TWICE PER DAY
     Route: 055
     Dates: start: 20001201
  2. ALLEGRA [Concomitant]
  3. FLONASE [Concomitant]
  4. SINGULAIR [Concomitant]
  5. MAXAIR [Concomitant]

REACTIONS (5)
  - JOINT SWELLING [None]
  - LOCAL SWELLING [None]
  - OEDEMA PERIPHERAL [None]
  - PRURITUS [None]
  - RASH MACULAR [None]
